FAERS Safety Report 12763232 (Version 1)
Quarter: 2016Q3

REPORT INFORMATION
  Report Type: Spontaneous
  Country: US (occurrence: US)
  Receive Date: 20160919
  Receipt Date: 20160919
  Transmission Date: 20161109
  Serious: Yes (Life-Threatening, Disabling, Other)
  Sender: FDA-Public Use
  Company Number: None

PATIENT
  Age: 38 Year
  Sex: Female
  Weight: 75.6 kg

DRUGS (5)
  1. ADDERALL XR [Concomitant]
     Active Substance: AMPHETAMINE ASPARTATE\AMPHETAMINE SULFATE\DEXTROAMPHETAMINE SACCHARATE\DEXTROAMPHETAMINE SULFATE
  2. CENTRUM MULTI VITAMIN [Concomitant]
  3. SERTRALINE [Suspect]
     Active Substance: SERTRALINE HYDROCHLORIDE
     Indication: STRESS
     Route: 048
     Dates: start: 20160102, end: 20160918
  4. DIANE PAN [Concomitant]
  5. SERTRALINE [Suspect]
     Active Substance: SERTRALINE HYDROCHLORIDE
     Indication: ANXIETY
     Route: 048
     Dates: start: 20160102, end: 20160918

REACTIONS (7)
  - Seizure [None]
  - Condition aggravated [None]
  - Hyperhidrosis [None]
  - Suicidal ideation [None]
  - Panic attack [None]
  - Anxiety [None]
  - Loss of consciousness [None]

NARRATIVE: CASE EVENT DATE: 20160510
